FAERS Safety Report 8086501-6 (Version None)
Quarter: 2012Q1

REPORT INFORMATION
  Report Type: 
  Country: None (occurrence: None)
  Receive Date: 20120128
  Receipt Date: 20110415
  Transmission Date: 20120608
  Serious: No
  Sender: FDA-Public Use
  Company Number: US-ABBOTT-11P-163-0719288-00

PATIENT
  Sex: Female
  Weight: 49.486 kg

DRUGS (10)
  1. WARFARIN SODIUM [Concomitant]
     Indication: THROMBOSIS IN DEVICE
  2. LISINOPRIL [Concomitant]
     Indication: HYPERTENSION
  3. HUMIRA [Suspect]
     Indication: CROHN'S DISEASE
     Dates: start: 20090101, end: 20090101
  4. FOSAMAX [Concomitant]
     Indication: BONE DISORDER
  5. THYROID [Concomitant]
     Indication: HYPOTHYROIDISM
  6. POTASSIUM [Concomitant]
     Indication: DEHYDRATION
  7. CALCIUM [Concomitant]
     Indication: HYPOCALCAEMIA
  8. POTASSIUM [Concomitant]
     Indication: HYPOKALAEMIA
  9. WARFARIN SODIUM [Concomitant]
     Indication: THROMBOSIS
  10. VITAMIN B-12 [Concomitant]
     Indication: VITAMIN SUPPLEMENTATION

REACTIONS (3)
  - ERYTHEMA [None]
  - PRURITUS GENERALISED [None]
  - SWELLING FACE [None]
